FAERS Safety Report 15864406 (Version 3)
Quarter: 2025Q2

REPORT INFORMATION
  Report Type: Spontaneous
  Country: US (occurrence: US)
  Receive Date: 20190124
  Receipt Date: 20250430
  Transmission Date: 20250716
  Serious: Yes (Other)
  Sender: TEVA
  Company Number: US-TEVA-2019-US-1001516

PATIENT
  Age: 20 Year
  Sex: Female

DRUGS (2)
  1. OXYCODONE [Suspect]
     Active Substance: OXYCODONE
     Indication: Crohn^s disease
     Route: 065
  2. DIAMORPHINE [Suspect]
     Active Substance: DIAMORPHINE
     Indication: Crohn^s disease
     Route: 065

REACTIONS (3)
  - Drug use disorder [Unknown]
  - Maternal exposure during pregnancy [Unknown]
  - Off label use [Unknown]
